FAERS Safety Report 8401669-7 (Version None)
Quarter: 2012Q2

REPORT INFORMATION
  Report Type: 
  Country: None (occurrence: None)
  Receive Date: 20120601
  Receipt Date: 20120528
  Transmission Date: 20120825
  Serious: Yes (Other)
  Sender: FDA-Public Use
  Company Number: PHHY2012JP040118

PATIENT
  Sex: Female

DRUGS (7)
  1. BIFIDOBACTERIUM BIFIDUM [Concomitant]
     Dosage: 1 G, UNK
  2. LOPEMIN [Concomitant]
     Dosage: 2 G, UNK
     Route: 048
  3. DIART [Concomitant]
     Dosage: 30 MG, UNK
  4. EXELON [Suspect]
     Indication: DEMENTIA ALZHEIMER'S TYPE
     Dosage: 4.5 MG, UNK
     Route: 062
     Dates: start: 20120424, end: 20120507
  5. ADENOSINE [Concomitant]
     Dosage: 1 G, UNK
  6. PANCRELIPASE [Concomitant]
     Dosage: 300 MG, UNK
     Route: 048
  7. MUCOSTA [Concomitant]
     Dosage: 100 MG, UNK
     Route: 048

REACTIONS (2)
  - DEHYDRATION [None]
  - THIRST [None]
